FAERS Safety Report 6096394-4 (Version None)
Quarter: 2009Q1

REPORT INFORMATION
  Report Type: 
  Country: None (occurrence: None)
  Receive Date: 20090227
  Receipt Date: 20090119
  Transmission Date: 20090719
  Serious: No
  Sender: FDA-Public Use
  Company Number: A0759215A

PATIENT
  Age: 46 Year
  Sex: Female
  Weight: 133.2 kg

DRUGS (7)
  1. LAMICTAL [Suspect]
     Indication: EPILEPSY
     Dates: start: 20081114, end: 20081126
  2. TOPAMAX [Concomitant]
  3. ESTROGENIC SUBSTANCE [Concomitant]
  4. NEXIUM [Concomitant]
  5. PROMETRIUM [Concomitant]
  6. IMITREX [Concomitant]
  7. TYLENOL [Concomitant]

REACTIONS (1)
  - RASH [None]
